FAERS Safety Report 7917680-6 (Version None)
Quarter: 2011Q4

REPORT INFORMATION
  Report Type: 
  Country: None (occurrence: None)
  Receive Date: 20111116
  Receipt Date: 20111114
  Transmission Date: 20120403
  Serious: Yes (Disabling, Other)
  Sender: FDA-Public Use
  Company Number: US-TEVA-309176USA

PATIENT
  Sex: Female

DRUGS (1)
  1. METRONIDAZOLE [Suspect]
     Indication: URINARY TRACT INFECTION
     Route: 048
     Dates: start: 20100401, end: 20100401

REACTIONS (14)
  - HYPOAESTHESIA [None]
  - FEELING ABNORMAL [None]
  - PHOTOPHOBIA [None]
  - ACTIVITIES OF DAILY LIVING IMPAIRED [None]
  - FEELING DRUNK [None]
  - ASTHMA [None]
  - DIZZINESS [None]
  - NAUSEA [None]
  - SUICIDAL IDEATION [None]
  - MIGRAINE [None]
  - HYPOGLYCAEMIA [None]
  - VERTIGO [None]
  - EAR PAIN [None]
  - CHEST DISCOMFORT [None]
